FAERS Safety Report 25253835 (Version 2)
Quarter: 2025Q2

REPORT INFORMATION
  Report Type: Spontaneous
  Country: US (occurrence: US)
  Receive Date: 20250430
  Receipt Date: 20250515
  Transmission Date: 20250716
  Serious: Yes (Hospitalization, Other)
  Sender: TEVA
  Company Number: US-TEVA-VS-3324962

PATIENT
  Age: 14 Year
  Sex: Female

DRUGS (14)
  1. OLANZAPINE [Suspect]
     Active Substance: OLANZAPINE
     Indication: Major depression
     Dosage: EVERY NIGHT
     Route: 048
  2. OLANZAPINE [Suspect]
     Active Substance: OLANZAPINE
     Indication: Major depression
     Dosage: EVERY NIGHT
     Route: 048
  3. DESVENLAFAXINE [Suspect]
     Active Substance: DESVENLAFAXINE
     Indication: Major depression
     Route: 048
  4. CLONAZEPAM [Concomitant]
     Active Substance: CLONAZEPAM
     Indication: Anxiety
     Route: 048
  5. DULOXETINE [Suspect]
     Active Substance: DULOXETINE
     Indication: Major depression
     Route: 048
  6. LISINOPRIL [Suspect]
     Active Substance: LISINOPRIL
     Indication: Product used for unknown indication
     Route: 065
  7. QUETIAPINE [Suspect]
     Active Substance: QUETIAPINE
     Indication: Major depression
     Route: 048
  8. QUETIAPINE [Suspect]
     Active Substance: QUETIAPINE
     Indication: Major depression
     Dosage: EVERY NIGHT
     Route: 048
  9. BUPROPION [Suspect]
     Active Substance: BUPROPION
     Indication: Major depression
     Route: 048
  10. METHYLPHENIDATE [Suspect]
     Active Substance: METHYLPHENIDATE
     Indication: Major depression
     Route: 048
  11. KETAMINE [Concomitant]
     Active Substance: KETAMINE
     Indication: Major depression
  12. ARIPIPRAZOLE [Suspect]
     Active Substance: ARIPIPRAZOLE
     Indication: Major depression
     Route: 048
  13. ESCITALOPRAM [Suspect]
     Active Substance: ESCITALOPRAM OXALATE
     Indication: Major depression
     Route: 048
  14. FLUOXETINE [Suspect]
     Active Substance: FLUOXETINE HYDROCHLORIDE
     Indication: Major depression
     Route: 048

REACTIONS (19)
  - Tachycardia [Unknown]
  - Hyperprolactinaemia [Unknown]
  - Vomiting [Unknown]
  - Somnolence [Unknown]
  - Drug ineffective [Unknown]
  - Protein total increased [Unknown]
  - Galactorrhoea [Unknown]
  - Blood magnesium increased [Unknown]
  - Overdose [Unknown]
  - Therapy non-responder [Unknown]
  - Vision blurred [Unknown]
  - Akathisia [Unknown]
  - High density lipoprotein increased [Unknown]
  - Dyspepsia [Unknown]
  - Blood sodium increased [Unknown]
  - Headache [Unknown]
  - Mental impairment [Unknown]
  - Protein urine present [Unknown]
  - Intentional overdose [Unknown]
